FAERS Safety Report 13582684 (Version 4)
Quarter: 2017Q4

REPORT INFORMATION
  Report Type: Spontaneous
  Country: US (occurrence: US)
  Receive Date: 20170525
  Receipt Date: 20171026
  Transmission Date: 20180320
  Serious: Yes (Other)
  Sender: FDA-Public Use
  Company Number: US-009507513-1705USA001661

PATIENT
  Age: 32 Year
  Sex: Female
  Weight: 127.8 kg

DRUGS (1)
  1. NEXPLANON [Suspect]
     Active Substance: ETONOGESTREL
     Indication: CONTRACEPTION
     Dosage: 1 IMPLANT, FREQUENCY:EVERY 3 YEARS(Q3YEARS)
     Dates: start: 20140507, end: 20170626

REACTIONS (8)
  - Device deployment issue [Recovered/Resolved]
  - Migration of implanted drug [Recovered/Resolved]
  - Complication of device removal [Recovered/Resolved]
  - General anaesthesia [Recovered/Resolved]
  - Incorrect drug administration duration [Recovered/Resolved]
  - Weight increased [Unknown]
  - Complication associated with device [Recovered/Resolved]
  - No adverse event [Unknown]

NARRATIVE: CASE EVENT DATE: 20140507
